FAERS Safety Report 10197834 (Version 1)
Quarter: 2014Q2

REPORT INFORMATION
  Report Type: Spontaneous
  Country: US (occurrence: None)
  Receive Date: 20140523
  Receipt Date: 20140523
  Transmission Date: 20141212
  Serious: Yes (Hospitalization, Other)
  Sender: FDA-Public Use
  Company Number: None

PATIENT
  Age: 73 Year
  Sex: Female
  Weight: 58.97 kg

DRUGS (8)
  1. PROLIA [Suspect]
     Indication: BONE DISORDER
  2. SPIRIVA HANDIHALER [Concomitant]
  3. ADVAIR DISKUS [Concomitant]
  4. AMLODIPINE [Concomitant]
  5. OMEPRAZOLE [Concomitant]
  6. ZOCOR [Concomitant]
  7. MULTI VITAMIN [Concomitant]
  8. VIT D + CALCIUM [Concomitant]

REACTIONS (6)
  - Dyspnoea [None]
  - Muscle disorder [None]
  - Eye disorder [None]
  - Skin disorder [None]
  - Gait disturbance [None]
  - Balance disorder [None]
